FAERS Safety Report 11401002 (Version 3)
Quarter: 2015Q3

REPORT INFORMATION
  Report Type: Spontaneous
  Country: US (occurrence: US)
  Receive Date: 20150820
  Receipt Date: 20150921
  Transmission Date: 20151125
  Serious: No
  Sender: FDA-Public Use
  Company Number: ALCN2015US005235

PATIENT
  Sex: Female

DRUGS (2)
  1. DUREZOL [Suspect]
     Active Substance: DIFLUPREDNATE
     Indication: HERPES ZOSTER
     Dosage: 1 GTT, UNK
     Route: 047
  2. DUREZOL [Suspect]
     Active Substance: DIFLUPREDNATE
     Indication: EYE IRRITATION

REACTIONS (3)
  - Eye pain [Recovered/Resolved]
  - Dry eye [Not Recovered/Not Resolved]
  - Contraindicated drug administered [Not Recovered/Not Resolved]

NARRATIVE: CASE EVENT DATE: 2014
